FAERS Safety Report 8494264-5 (Version None)
Quarter: 2012Q3

REPORT INFORMATION
  Report Type: 
  Country: None (occurrence: None)
  Receive Date: 20120709
  Receipt Date: 20120706
  Transmission Date: 20120928
  Serious: Yes (Hospitalization, Other)
  Sender: FDA-Public Use
  Company Number: PHHY2012NL057998

PATIENT
  Sex: Male

DRUGS (3)
  1. ZOMETA [Suspect]
     Dosage: 4 MG/100ML, 1X PER 28 DAYS
     Dates: start: 20120529
  2. ZOMETA [Suspect]
     Indication: RENAL CELL CARCINOMA
     Dosage: 4 MG/100ML, 1X PER 28 DAYS
     Dates: start: 20101122
  3. ZOMETA [Suspect]
     Dosage: 4 MG/100ML, 1X PER 28 DAYS
     Dates: start: 20120706

REACTIONS (8)
  - BACK PAIN [None]
  - NEUROPATHY PERIPHERAL [None]
  - METASTASES TO BONE [None]
  - BONE NEOPLASM [None]
  - PELVIC NEOPLASM [None]
  - NEOPLASM PROGRESSION [None]
  - SENSORY DISTURBANCE [None]
  - NEOPLASM MALIGNANT [None]
